FAERS Safety Report 8652847 (Version 4)
Quarter: 2012Q4

REPORT INFORMATION
  Report Type: 
  Country: US (occurrence: US)
  Receive Date: 20120706
  Receipt Date: 20121030
  Transmission Date: 20130627
  Serious: Yes (Death, Hospitalization)
  Sender: FDA-Public Use
  Company Number: US-GLAXOSMITHKLINE-A0983422A

PATIENT
  Age: 35 Year
  Sex: Male
  Weight: 152.3 kg

DRUGS (11)
  1. ADVAIR [Suspect]
     Indication: ASTHMA
     Dosage: 1PUFF Twice per day
     Route: 055
     Dates: end: 2010
  2. ALBUTEROL [Concomitant]
  3. DILTIAZEM [Concomitant]
  4. LANOXIN [Concomitant]
  5. SINGULAIR [Concomitant]
  6. IMDUR [Concomitant]
  7. LASIX [Concomitant]
  8. LOTENSIN [Concomitant]
  9. ALDACTONE [Concomitant]
  10. HYDRALAZINE [Concomitant]
  11. CARVEDILOL [Concomitant]

REACTIONS (4)
  - Death [Fatal]
  - Asthma [Unknown]
  - Respiratory failure [Unknown]
  - Cardio-respiratory arrest [Unknown]
